FAERS Safety Report 9012966 (Version 1)
Quarter: 2013Q1

REPORT INFORMATION
  Report Type: Spontaneous
  Country: CH (occurrence: CH)
  Receive Date: 20130114
  Receipt Date: 20130114
  Transmission Date: 20140127
  Serious: Yes (Hospitalization)
  Sender: FDA-Public Use
  Company Number: CH-GLAXOSMITHKLINE-B0858385A

PATIENT
  Age: 81 Year
  Sex: Female

DRUGS (8)
  1. RANITIDINE [Suspect]
     Indication: PROPHYLACTIC CHEMOTHERAPY
     Route: 048
     Dates: start: 20120912, end: 201211
  2. CARBOPLATINE [Suspect]
     Indication: OVARIAN CANCER
     Route: 042
     Dates: start: 20120912, end: 20121112
  3. TAXOL [Suspect]
     Indication: OVARIAN CANCER
     Route: 042
     Dates: start: 20120912, end: 20121112
  4. VANCOMYCIN [Suspect]
     Indication: BACTERIAL INFECTION
     Route: 042
     Dates: start: 20121207, end: 20121213
  5. CLINDAMYCIN [Suspect]
     Indication: BACTERIAL INFECTION
     Dosage: 450MG THREE TIMES PER DAY
     Route: 048
     Dates: start: 20121214, end: 20121216
  6. METOCLOPRAMIDE [Suspect]
     Indication: PROPHYLACTIC CHEMOTHERAPY
     Route: 042
     Dates: start: 20120912, end: 201211
  7. CLEMASTINE [Suspect]
     Indication: PROPHYLACTIC CHEMOTHERAPY
     Route: 042
     Dates: start: 20120912, end: 201211
  8. DEXAMETHASONE [Suspect]
     Indication: PROPHYLACTIC CHEMOTHERAPY
     Route: 042
     Dates: start: 20120912, end: 20121129

REACTIONS (2)
  - Rash erythematous [Recovering/Resolving]
  - Pruritus [Recovering/Resolving]
